FAERS Safety Report 24300530 (Version 4)
Quarter: 2025Q1

REPORT INFORMATION
  Report Type: Spontaneous
  Country: US (occurrence: US)
  Receive Date: 20240910
  Receipt Date: 20250325
  Transmission Date: 20250409
  Serious: Yes (Hospitalization)
  Sender: ALEXION PHARMACEUTICALS
  Company Number: 2024A200971

PATIENT

DRUGS (1)
  1. SYMBICORT [Suspect]
     Active Substance: BUDESONIDE\FORMOTEROL FUMARATE DIHYDRATE
     Dosage: 1 PUFF, TWICE DAILY

REACTIONS (5)
  - Dyspnoea [Unknown]
  - Incorrect dose administered [Unknown]
  - Device issue [Unknown]
  - Drug dose omission by device [Unknown]
  - Device malfunction [Unknown]
